FAERS Safety Report 12493894 (Version 1)
Quarter: 2016Q2

REPORT INFORMATION
  Report Type: Spontaneous
  Country: US (occurrence: US)
  Receive Date: 20160623
  Receipt Date: 20160623
  Transmission Date: 20160815
  Serious: No
  Sender: FDA-Public Use
  Company Number: US-VIVUS-2015V1000445

PATIENT
  Age: 64 Year
  Sex: Male
  Weight: 93.07 kg

DRUGS (6)
  1. PAXIL [Concomitant]
     Active Substance: PAROXETINE HYDROCHLORIDE
     Indication: BIPOLAR DISORDER
     Dosage: TAKE 1 TABLET (20MG) BY MOUTH ONCE DAILY
     Route: 048
     Dates: start: 2012
  2. LITHIUM CARBONATE. [Concomitant]
     Active Substance: LITHIUM CARBONATE
     Indication: BIPOLAR DISORDER
     Dosage: TAKE 1 CAPSULE (150MG) BY MOUTH THREE TIMES DAILY
     Route: 048
     Dates: start: 2012
  3. VERAPAMIL [Concomitant]
     Active Substance: VERAPAMIL HYDROCHLORIDE
     Indication: HYPERTENSION
     Dosage: TAKE 1/2 TABLET (240MG) BY MOUTH ONCE DAILY
  4. STENDRA [Suspect]
     Active Substance: AVANAFIL
     Indication: ERECTILE DYSFUNCTION
     Dosage: TWO TABLETS, ONCE DAILY AS NEEDED
     Route: 048
     Dates: start: 20150821
  5. STENDRA [Suspect]
     Active Substance: AVANAFIL
     Dosage: ONCE DAILY ONCE DAILY AS NEEDED
     Route: 048
     Dates: start: 20150801
  6. TRIAMTERENE AND HYDROCHLOROTHIAZIDE [Concomitant]
     Active Substance: HYDROCHLOROTHIAZIDE\TRIAMTERENE
     Indication: HYPERTENSION
     Dosage: TAKE 1 TABLET (75/50MG) BY MOUTH ONCE DAILY
     Route: 048

REACTIONS (1)
  - Drug ineffective [Not Recovered/Not Resolved]

NARRATIVE: CASE EVENT DATE: 20150808
